FAERS Safety Report 9055783 (Version 1)
Quarter: 2013Q1

REPORT INFORMATION
  Report Type: Spontaneous
  Country: None (occurrence: US)
  Receive Date: 20130206
  Receipt Date: 20130206
  Transmission Date: 20140127
  Serious: No
  Sender: FDA-Public Use
  Company Number: US-TEVA-384671USA

PATIENT
  Age: 26 Year
  Sex: Female

DRUGS (1)
  1. NUVIGIL [Suspect]
     Dates: start: 20130125, end: 201301

REACTIONS (1)
  - Rash erythematous [Recovered/Resolved]
